FAERS Safety Report 9128808 (Version 1)
Quarter: 2013Q1

REPORT INFORMATION
  Report Type: Report from Study
  Country: US (occurrence: US)
  Receive Date: 20130125
  Receipt Date: 20130125
  Transmission Date: 20140127
  Serious: Yes (Other)
  Sender: FDA-Public Use
  Company Number: US-ABBOTT-13P-163-1037944-00

PATIENT
  Sex: Female
  Weight: 49.49 kg

DRUGS (1)
  1. HUMIRA [Suspect]
     Indication: CROHN^S DISEASE
     Dates: start: 201106, end: 2012

REACTIONS (3)
  - Large intestinal stenosis [Recovered/Resolved]
  - Inflammatory bowel disease [Recovered/Resolved]
  - Crohn^s disease [Recovered/Resolved]
